FAERS Safety Report 7071666-5 (Version None)
Quarter: 2010Q4

REPORT INFORMATION
  Report Type: 
  Country: None (occurrence: None)
  Receive Date: 20101029
  Receipt Date: 20100127
  Transmission Date: 20110411
  Serious: No
  Sender: FDA-Public Use
  Company Number: A0810375A

PATIENT
  Age: 50 Year
  Sex: Female

DRUGS (14)
  1. ADVAIR DISKUS 100/50 [Suspect]
     Indication: MULTIPLE ALLERGIES
     Dosage: 1PUFF PER DAY
     Route: 055
     Dates: start: 20090301, end: 20090920
  2. FLOVENT [Suspect]
     Indication: MULTIPLE ALLERGIES
     Dosage: 3PUFF TWICE PER DAY
     Route: 055
     Dates: start: 20090920
  3. COUMADIN [Concomitant]
  4. ATACAND [Concomitant]
  5. HYDROCHLOROTHIAZIDE [Concomitant]
  6. NEXIUM [Concomitant]
  7. JANUVIA [Concomitant]
  8. GLIPIZIDE [Concomitant]
  9. SIMVASTATIN [Concomitant]
  10. ZETIA [Concomitant]
  11. POTASSIUM CHLORIDE [Concomitant]
  12. CLONIDINE [Concomitant]
  13. VITAMIN D [Concomitant]
  14. PREDNISONE [Concomitant]

REACTIONS (3)
  - ADVERSE REACTION [None]
  - LIP OEDEMA [None]
  - PRODUCT QUALITY ISSUE [None]
